FAERS Safety Report 25526194 (Version 1)
Quarter: 2025Q3

REPORT INFORMATION
  Report Type: Spontaneous
  Country: GB (occurrence: GB)
  Receive Date: 20250707
  Receipt Date: 20250707
  Transmission Date: 20251021
  Serious: Yes (Other)
  Sender: MYLAN
  Company Number: None

PATIENT
  Sex: Female

DRUGS (1)
  1. POMALIDOMIDE [Suspect]
     Active Substance: POMALIDOMIDE
     Indication: Product used for unknown indication

REACTIONS (10)
  - Chest discomfort [Recovered/Resolved]
  - Asthma [Recovered/Resolved]
  - Skin burning sensation [Recovered/Resolved]
  - Eye pain [Recovered/Resolved]
  - Rhinalgia [Recovered/Resolved]
  - Hypoaesthesia oral [Recovered/Resolved]
  - Abdominal discomfort [Recovered/Resolved]
  - Palpitations [Recovered/Resolved]
  - Pruritus [Recovered/Resolved]
  - Paraesthesia [Recovered/Resolved]
